FAERS Safety Report 9924145 (Version 1)
Quarter: 2014Q1

REPORT INFORMATION
  Report Type: Spontaneous
  Country: US (occurrence: US)
  Receive Date: 20140226
  Receipt Date: 20140226
  Transmission Date: 20141002
  Serious: No
  Sender: FDA-Public Use
  Company Number: US-BIOGENIDEC-2014BI016169

PATIENT
  Age: 43 Year
  Sex: Female

DRUGS (2)
  1. TYSABRI [Suspect]
     Indication: MULTIPLE SCLEROSIS
     Route: 042
     Dates: start: 20130605
  2. AVONEX [Concomitant]
     Indication: MULTIPLE SCLEROSIS
     Route: 030
     Dates: start: 20120928

REACTIONS (6)
  - Choking [Unknown]
  - Hypoaesthesia [Unknown]
  - Paraesthesia [Unknown]
  - Gait disturbance [Unknown]
  - Dysphagia [Unknown]
  - Multiple sclerosis relapse [Not Recovered/Not Resolved]
